FAERS Safety Report 9392013 (Version 1)
Quarter: 2013Q3

REPORT INFORMATION
  Report Type: Spontaneous
  Country: US (occurrence: US)
  Receive Date: 20130709
  Receipt Date: 20130709
  Transmission Date: 20140515
  Serious: Yes (Other)
  Sender: FDA-Public Use
  Company Number: CHPA2013US010771

PATIENT
  Age: 69 Year
  Sex: Female

DRUGS (3)
  1. EXCEDRIN SINUS HEADACHE [Suspect]
     Indication: SINUS HEADACHE
     Dosage: 2 DF, Q4H
     Route: 048
  2. ACID PREPARATIONS [Concomitant]
     Indication: GASTROOESOPHAGEAL REFLUX DISEASE
  3. CARDIAC THERAPY [Concomitant]

REACTIONS (7)
  - Infection [Not Recovered/Not Resolved]
  - Feeling hot [Not Recovered/Not Resolved]
  - Erythema [Not Recovered/Not Resolved]
  - Oedema peripheral [Not Recovered/Not Resolved]
  - Pain [Not Recovered/Not Resolved]
  - Peripheral vascular disorder [Not Recovered/Not Resolved]
  - Disease recurrence [Not Recovered/Not Resolved]
